FAERS Safety Report 23344611 (Version 2)
Quarter: 2024Q1

REPORT INFORMATION
  Report Type: Spontaneous
  Country: BR (occurrence: BR)
  Receive Date: 20231228
  Receipt Date: 20240220
  Transmission Date: 20240409
  Serious: Yes (Other)
  Sender: FDA-Public Use
  Company Number: BR-NOVOPROD-1154188

PATIENT
  Age: 437 Month
  Sex: Female
  Weight: 90 kg

DRUGS (4)
  1. TRESIBA [Suspect]
     Active Substance: INSULIN DEGLUDEC
     Indication: Product used for unknown indication
     Dosage: 30UI
     Dates: start: 2023
  2. TRESIBA [Suspect]
     Active Substance: INSULIN DEGLUDEC
     Dosage: AS PER FOOD INTAKE
  3. NOVORAPID [Suspect]
     Active Substance: INSULIN ASPART
     Indication: Product used for unknown indication
     Dosage: DEPENDS ON CAPILLARY BLOOD GLUCOSE LEVEL
     Dates: start: 2022
  4. NOVORAPID [Suspect]
     Active Substance: INSULIN ASPART
     Dosage: DOSING REGIMEN IS DETERMINED ACCORDING TO THE FOOD INTAKE OF THE DAY

REACTIONS (1)
  - Breast inflammation [Recovered/Resolved]
